FAERS Safety Report 5753759-5 (Version None)
Quarter: 2008Q2

REPORT INFORMATION
  Report Type: 
  Country: None (occurrence: None)
  Receive Date: 20080527
  Receipt Date: 20080527
  Transmission Date: 20081010
  Serious: Yes (Hospitalization)
  Sender: FDA-Public Use
  Company Number: None

PATIENT
  Sex: Female
  Weight: 66.4 kg

DRUGS (4)
  1. FLUOROURACIL [Suspect]
     Dosage: 3856 MG
     Dates: end: 20080507
  2. BEVACIZUMAB (RHUMAB VEGF) [Suspect]
     Dosage: 330 MG
     Dates: end: 20080507
  3. LEUCOVORIN CALCIUM [Suspect]
     Dosage: 680 MG
     Dates: end: 20080507
  4. ELOXATIN [Suspect]
     Dosage: 112 MG
     Dates: end: 20080507

REACTIONS (1)
  - PNEUMONIA [None]
